FAERS Safety Report 5531824-5 (Version None)
Quarter: 2007Q4

REPORT INFORMATION
  Report Type: 
  Country: None (occurrence: None)
  Receive Date: 20071203
  Receipt Date: 20071119
  Transmission Date: 20080405
  Serious: Yes (Other)
  Sender: FDA-Public Use
  Company Number: DE-GENENTECH-251229

PATIENT
  Sex: Female
  Weight: 77 kg

DRUGS (4)
  1. AVASTIN [Suspect]
     Indication: BREAST CANCER METASTATIC
     Dosage: 770 MG, Q3W
     Route: 042
     Dates: start: 20070822
  2. HEPARIN [Suspect]
     Indication: INDWELLING CATHETER MANAGEMENT
     Dosage: UNK, UNKNOWN
     Route: 065
  3. TAXOL [Suspect]
     Indication: BREAST CANCER METASTATIC
     Dosage: 155 MG, UNK
     Route: 042
     Dates: start: 20070926
  4. ZOMETA [Concomitant]
     Indication: DRUG USE FOR UNKNOWN INDICATION
     Dates: start: 20021115

REACTIONS (3)
  - ACTIVATED PARTIAL THROMBOPLASTIN TIME PROLONGED [None]
  - DEEP VEIN THROMBOSIS [None]
  - EPISTAXIS [None]
